FAERS Safety Report 9956833 (Version 1)
Quarter: 2014Q1

REPORT INFORMATION
  Report Type: Report from Study
  Country: US (occurrence: US)
  Receive Date: 20140304
  Receipt Date: 20140304
  Transmission Date: 20141002
  Serious: No
  Sender: FDA-Public Use
  Company Number: US-ABBVIE-13P-163-1097149-00

PATIENT
  Sex: Female

DRUGS (12)
  1. HUMIRA [Suspect]
     Indication: CROHN^S DISEASE
     Dates: start: 20130228
  2. CYMBALTA [Concomitant]
     Indication: MUSCLE SPASMS
  3. DEXILANT [Concomitant]
     Indication: DYSPEPSIA
  4. DEXILANT [Concomitant]
     Indication: NAUSEA
  5. SYNTHROID [Concomitant]
     Indication: HYPOTHYROIDISM
  6. TRAZODONE HCL [Concomitant]
     Indication: INSOMNIA
     Dosage: AT NIGHT
  7. BIOTIN [Concomitant]
     Indication: VITAMIN SUPPLEMENTATION
  8. CITRACAL [Concomitant]
     Indication: MINERAL SUPPLEMENTATION
  9. D-3 [Concomitant]
     Indication: VITAMIN SUPPLEMENTATION
  10. OMEGA 369 [Concomitant]
     Indication: VITAMIN SUPPLEMENTATION
  11. ONE A DAY WOMEN 50+ [Concomitant]
     Indication: VITAMIN SUPPLEMENTATION
  12. SAFFRON EXTRACTS [Concomitant]
     Indication: WEIGHT CONTROL

REACTIONS (2)
  - Oedema peripheral [Not Recovered/Not Resolved]
  - Neuropathy peripheral [Not Recovered/Not Resolved]
